FAERS Safety Report 4677542-7 (Version None)
Quarter: 2005Q2

REPORT INFORMATION
  Report Type: 
  Country: None (occurrence: None)
  Receive Date: 20050526
  Receipt Date: 20050526
  Transmission Date: 20051028
  Serious: Yes (Hospitalization)
  Sender: FDA-Public Use
  Company Number: None

PATIENT
  Age: 29 Year
  Sex: Male
  Weight: 127.0072 kg

DRUGS (1)
  1. TRAMADOL HCL [Suspect]
     Indication: ARTHRALGIA
     Dosage: 1-2    3 TIMES DAILY   ORAL
     Route: 048
     Dates: start: 20000825, end: 20050523

REACTIONS (3)
  - AMNESIA [None]
  - BACK INJURY [None]
  - CONVULSION [None]
